FAERS Safety Report 20740005 (Version 2)
Quarter: 2022Q3

REPORT INFORMATION
  Report Type: Spontaneous
  Country: US (occurrence: US)
  Receive Date: 20220422
  Receipt Date: 20220815
  Transmission Date: 20221027
  Serious: No
  Sender: FDA-Public Use
  Company Number: US-PFIZER INC-202200476652

PATIENT
  Age: 64 Year
  Sex: Female
  Weight: 66.41 kg

DRUGS (2)
  1. GABAPENTIN [Suspect]
     Active Substance: GABAPENTIN
     Indication: Fibromyalgia
     Dosage: 200 MG, 3X/DAY
  2. GABAPENTIN [Suspect]
     Active Substance: GABAPENTIN
     Indication: Neuropathy peripheral
     Dosage: 300 MG CAPSULES TAKE 3 TIMES
     Route: 048
     Dates: start: 20220317

REACTIONS (4)
  - Drug ineffective [Unknown]
  - Hypersomnia [Unknown]
  - Headache [Unknown]
  - Rapid eye movements sleep abnormal [Unknown]

NARRATIVE: CASE EVENT DATE: 20220301
